FAERS Safety Report 23836324 (Version 1)
Quarter: 2024Q2

REPORT INFORMATION
  Report Type: Spontaneous
  Country: US (occurrence: US)
  Receive Date: 20240509
  Receipt Date: 20240509
  Transmission Date: 20240716
  Serious: Yes (Other)
  Sender: FDA-Public Use
  Company Number: US-PFIZER INC-PV202400059406

PATIENT
  Age: 48 Year

DRUGS (1)
  1. SUNITINIB MALATE [Suspect]
     Active Substance: SUNITINIB MALATE
     Indication: Renal cell carcinoma
     Dosage: UNK

REACTIONS (1)
  - Multiple organ dysfunction syndrome [Unknown]
